FAERS Safety Report 7108971-X (Version None)
Quarter: 2010Q4

REPORT INFORMATION
  Report Type: 
  Country: None (occurrence: None)
  Receive Date: 20101117
  Receipt Date: 20101103
  Transmission Date: 20110411
  Serious: Yes (Other)
  Sender: FDA-Public Use
  Company Number: PHHY2010CA74774

PATIENT
  Sex: Female

DRUGS (3)
  1. EXJADE [Suspect]
     Indication: THALASSAEMIA BETA
     Dosage: 2000 MG, DAILY
     Route: 048
     Dates: start: 20100410
  2. EXJADE [Suspect]
     Indication: IRON OVERLOAD
     Dosage: UNK
     Dates: start: 20101101
  3. VITAMIN D [Concomitant]
     Dosage: DAILY

REACTIONS (4)
  - BRONCHITIS [None]
  - COUGH [None]
  - LETHARGY [None]
  - OROPHARYNGEAL PAIN [None]
